FAERS Safety Report 5722428-X (Version None)
Quarter: 2008Q2

REPORT INFORMATION
  Report Type: 
  Country: None (occurrence: None)
  Receive Date: 20080429
  Receipt Date: 20080423
  Transmission Date: 20081010
  Serious: Yes (Other)
  Sender: FDA-Public Use
  Company Number: BR-ASTRAZENECA-2008UW06866

PATIENT
  Age: 65 Year
  Sex: Female
  Weight: 52 kg

DRUGS (2)
  1. ARIMIDEX [Suspect]
     Indication: BREAST CANCER
     Route: 048
     Dates: start: 20021201
  2. NOLVADEX [Suspect]
     Indication: BREAST CANCER
     Route: 048
     Dates: start: 20010101, end: 20021101

REACTIONS (4)
  - ARTHRITIS [None]
  - BILIARY CIRRHOSIS PRIMARY [None]
  - OSTEOPENIA [None]
  - VAGINAL POLYP [None]
